FAERS Safety Report 7939983-1 (Version None)
Quarter: 2011Q4

REPORT INFORMATION
  Report Type: 
  Country: None (occurrence: None)
  Receive Date: 20111125
  Receipt Date: 20110928
  Transmission Date: 20120403
  Serious: Yes (Hospitalization)
  Sender: FDA-Public Use
  Company Number: DE-ROCHE-794737

PATIENT
  Sex: Female
  Weight: 44 kg

DRUGS (5)
  1. OXALIPLATIN [Suspect]
     Indication: RECTAL CANCER
     Dosage: DATE OF LAST DOSE PRIOR TO SAE:12 APRIL 2011.
     Route: 042
  2. VITAMIN B-12 [Concomitant]
     Indication: VITAMIN B12 DEFICIENCY
     Route: 048
  3. XELODA [Suspect]
     Indication: RECTAL CANCER
     Dosage: DATE OF LAST DOSE PRIOR TO SAE;15 APRIL 2011.825 MG/M2 D1-33 W/O WEEKENDS+OPTIONAL BOOSTS
     Route: 048
  4. PANTOPRAZOLE [Concomitant]
     Indication: PROPHYLAXIS AGAINST GASTROINTESTINAL ULCER
     Route: 048
  5. INSULIN [Concomitant]
     Indication: DIABETES MELLITUS
     Route: 058

REACTIONS (5)
  - CYSTITIS [None]
  - URINARY RETENTION [None]
  - SEPSIS [None]
  - RENAL FAILURE ACUTE [None]
  - MALNUTRITION [None]
